FAERS Safety Report 11823830 (Version 1)
Quarter: 2015Q4

REPORT INFORMATION
  Report Type: Spontaneous
  Country: US (occurrence: US)
  Receive Date: 20151210
  Receipt Date: 20151210
  Transmission Date: 20160305
  Serious: No
  Sender: FDA-Public Use
  Company Number: US-AKRON, INC.-1045323

PATIENT
  Age: 70 Year
  Sex: Female
  Weight: 74.55 kg

DRUGS (1)
  1. DORZOLAMIDE HCL TIMOLOL MALEATE OPHTHALMIC SOLUTION [Suspect]
     Active Substance: DORZOLAMIDE HYDROCHLORIDE\TIMOLOL MALEATE
     Route: 031
     Dates: start: 20150108, end: 20150109

REACTIONS (2)
  - Rash [Recovered/Resolved]
  - Product physical consistency issue [None]

NARRATIVE: CASE EVENT DATE: 20150108
